FAERS Safety Report 14822926 (Version 1)
Quarter: 2018Q2

REPORT INFORMATION
  Report Type: Spontaneous
  Country: AT (occurrence: AT)
  Receive Date: 20180427
  Receipt Date: 20180427
  Transmission Date: 20180711
  Serious: Yes (Hospitalization)
  Sender: FDA-Public Use
  Company Number: AT-PFIZER INC-2018077607

PATIENT
  Age: 80 Year
  Sex: Male

DRUGS (5)
  1. RAMIPRIL. [Suspect]
     Active Substance: RAMIPRIL
     Dosage: UNK
  2. JANUVIA [Suspect]
     Active Substance: SITAGLIPTIN PHOSPHATE
     Indication: TYPE 2 DIABETES MELLITUS
     Dosage: UNK, 1X/DAY (1000, 1-0-0)
  3. THROMBO ASA [Suspect]
     Active Substance: ASPIRIN
     Dosage: UNK, 1X/DAY (100)
  4. GLICLAZIDE [Suspect]
     Active Substance: GLICLAZIDE
     Indication: TYPE 2 DIABETES MELLITUS
     Dosage: UNK, 1X/DAY (30, 3-0-0 )
  5. SIMVASTATIN. [Suspect]
     Active Substance: SIMVASTATIN
     Dosage: UNK (40)

REACTIONS (8)
  - Treatment noncompliance [Unknown]
  - Blood glucose increased [None]
  - General physical health deterioration [None]
  - Therapy cessation [None]
  - Diplopia [None]
  - Dizziness [None]
  - Asthenia [None]
  - Cognitive disorder [None]
